FAERS Safety Report 8870476 (Version 1)
Quarter: 2012Q4

REPORT INFORMATION
  Report Type: Spontaneous
  Country: US (occurrence: None)
  Receive Date: 20121026
  Receipt Date: 20121026
  Transmission Date: 20130627
  Serious: Yes (Hospitalization)
  Sender: FDA-Public Use
  Company Number: None

PATIENT
  Age: 78 Year
  Sex: Male

DRUGS (1)
  1. EXJADE [Suspect]
     Route: 048
     Dates: start: 20120727, end: 20110811

REACTIONS (3)
  - Blood pressure abnormal [None]
  - Chest pain [None]
  - Hearing impaired [None]
